FAERS Safety Report 9431077 (Version 1)
Quarter: 2013Q3

REPORT INFORMATION
  Report Type: Spontaneous
  Country: US (occurrence: US)
  Receive Date: 20130730
  Receipt Date: 20130730
  Transmission Date: 20140515
  Serious: Yes (Other)
  Sender: FDA-Public Use
  Company Number: US-BRISTOL-MYERS SQUIBB COMPANY-19124874

PATIENT
  Age: 61 Year
  Sex: Female
  Weight: 79.36 kg

DRUGS (12)
  1. METFORMIN HCL [Suspect]
     Indication: TYPE 2 DIABETES MELLITUS
     Dosage: 1DF:100MG IN MORNING AND 500MG IN AFTERNOON AND EVENING
  2. PLAVIX [Suspect]
     Indication: STENT PLACEMENT
  3. ASA [Concomitant]
     Dosage: PROIR TO STROKE :81MG
  4. HUMALOG [Concomitant]
     Dosage: 1DF:75/25 UNITS NOS
  5. RAMIPRIL [Concomitant]
  6. FUROSEMIDE [Concomitant]
  7. METOPROLOL [Concomitant]
  8. PROVIGIL [Concomitant]
  9. TRAZODONE HCL [Concomitant]
  10. CYMBALTA [Concomitant]
  11. GABAPENTIN [Concomitant]
  12. PRAMIPEXOLE HCL [Concomitant]

REACTIONS (3)
  - Myocardial infarction [Unknown]
  - Cerebrovascular accident [Unknown]
  - Blood glucose fluctuation [Unknown]
